FAERS Safety Report 11896484 (Version 2)
Quarter: 2016Q1

REPORT INFORMATION
  Report Type: Report from Study
  Country: CR (occurrence: CR)
  Receive Date: 20160107
  Receipt Date: 20160202
  Transmission Date: 20160526
  Serious: No
  Sender: FDA-Public Use
  Company Number: PHHY2016CR000918

PATIENT
  Age: 83 Year
  Sex: Female
  Weight: 72.56 kg

DRUGS (2)
  1. LOVASTATIN. [Concomitant]
     Active Substance: LOVASTATIN
     Indication: CEREBRAL DISORDER
     Dosage: 1 DF, QD (IN THE EVENING)
     Route: 048
  2. CO-DIOVAN [Suspect]
     Active Substance: HYDROCHLOROTHIAZIDE\VALSARTAN
     Indication: ARRHYTHMIA
     Dosage: 1 DF, QD (HYDROCHLOROTHIAZIDE 12.5 MG AND VALSARTAN 80 MG)
     Route: 048

REACTIONS (1)
  - Off label use [Unknown]
